FAERS Safety Report 5448252-3 (Version None)
Quarter: 2007Q3

REPORT INFORMATION
  Report Type: 
  Country: None (occurrence: None)
  Receive Date: 20070911
  Receipt Date: 20070904
  Transmission Date: 20080115
  Serious: Yes (Other)
  Sender: FDA-Public Use
  Company Number: PHBS2007JP13976

PATIENT
  Age: 51 Year
  Sex: Male

DRUGS (2)
  1. VOLTAREN [Suspect]
     Indication: GINGIVITIS
     Dosage: 50 MG, TID
     Route: 054
     Dates: start: 20070818, end: 20070818
  2. DISOPAIN [Suspect]
     Indication: GINGIVITIS
     Dosage: 75 MG/DAY
     Route: 048
     Dates: start: 20070817, end: 20070818

REACTIONS (2)
  - FATIGUE [None]
  - LOSS OF CONSCIOUSNESS [None]
